FAERS Safety Report 9867919 (Version 1)
Quarter: 2014Q1

REPORT INFORMATION
  Report Type: Spontaneous
  Country: NO (occurrence: NO)
  Receive Date: 20140204
  Receipt Date: 20140204
  Transmission Date: 20141002
  Serious: Yes (Other)
  Sender: FDA-Public Use
  Company Number: NO-AMGEN-NORSP2014006799

PATIENT
  Age: 63 Year
  Sex: Male

DRUGS (4)
  1. XGEVA [Suspect]
     Indication: PROSTATE CANCER
     Dosage: 120 MG, Q4WK
     Route: 058
     Dates: start: 20130129, end: 201401
  2. ZOLADEX                            /00732101/ [Concomitant]
     Indication: PROSTATE CANCER
     Dosage: 10.8 MG, Q3MO
     Dates: start: 201301
  3. BICALUTAMID [Concomitant]
     Indication: PROSTATE CANCER
     Dosage: 50 MG, QD FOR 30 DAYS
     Dates: start: 20121220, end: 20130114
  4. CALCIGRAN FORTE [Concomitant]
     Dosage: UNK
     Dates: start: 20130129

REACTIONS (2)
  - Pain in jaw [Not Recovered/Not Resolved]
  - Back pain [Unknown]
